FAERS Safety Report 16738089 (Version 2)
Quarter: 2019Q4

REPORT INFORMATION
  Report Type: Spontaneous
  Country: DE (occurrence: DE)
  Receive Date: 20190824
  Receipt Date: 20191128
  Transmission Date: 20200122
  Serious: Yes (Hospitalization)
  Sender: FDA-Public Use
  Company Number: PHHY2019DE191726

PATIENT
  Age: 76 Year
  Sex: Male
  Weight: 90 kg

DRUGS (24)
  1. FLUOROURACIL. [Suspect]
     Active Substance: FLUOROURACIL
     Dosage: 4996.8 MG, QCY
     Route: 042
     Dates: start: 20190616, end: 20190616
  2. NOVAMINSULFON [Concomitant]
     Active Substance: METAMIZOLE
     Indication: ABDOMINAL PAIN
     Dosage: UNK
     Route: 065
  3. DEXAMETHASONE. [Concomitant]
     Active Substance: DEXAMETHASONE
     Indication: PROPHYLAXIS
     Dosage: UNK
     Route: 065
     Dates: start: 20190614, end: 20190706
  4. ALFUZOSIN [Concomitant]
     Active Substance: ALFUZOSIN
     Indication: PROPHYLAXIS
     Dosage: UNK
     Route: 065
     Dates: start: 20180811
  5. METFORMIN [Concomitant]
     Active Substance: METFORMIN HYDROCHLORIDE
     Indication: DIABETES MELLITUS
     Dosage: UNK
     Route: 065
     Dates: start: 20180911
  6. FLUOROURACIL. [Suspect]
     Active Substance: FLUOROURACIL
     Indication: PANCREATIC CARCINOMA METASTATIC
     Dosage: 4996.8 MG, QCY
     Route: 042
     Dates: start: 20190614, end: 20190614
  7. OXALIPLATIN. [Suspect]
     Active Substance: OXALIPLATIN
     Dosage: 80 MG, QCY
     Route: 058
     Dates: start: 20190618, end: 20190618
  8. AMLODIPINE [Concomitant]
     Active Substance: AMLODIPINE BESYLATE
     Indication: HYPERTENSION
     Dosage: UNK
     Route: 065
     Dates: start: 20180911
  9. TRAMADOL. [Concomitant]
     Active Substance: TRAMADOL
     Indication: PARAESTHESIA
     Dosage: UNK
     Route: 065
     Dates: start: 20180911
  10. OLMESARTAN [Concomitant]
     Active Substance: OLMESARTAN
     Indication: HYPERTENSION
     Dosage: UNK
     Route: 065
     Dates: start: 20180911
  11. EMEND [Concomitant]
     Active Substance: APREPITANT
     Indication: PROPHYLAXIS
     Dosage: UNK
     Route: 065
     Dates: start: 20190614, end: 20190706
  12. OXALIPLATIN. [Suspect]
     Active Substance: OXALIPLATIN
     Indication: PANCREATIC CARCINOMA METASTATIC
     Dosage: 176.97 MG, QCY
     Route: 042
     Dates: start: 20190614, end: 20190614
  13. OXALIPLATIN. [Suspect]
     Active Substance: OXALIPLATIN
     Dosage: 80 MG, QCY
     Route: 058
     Dates: start: 20190715, end: 20190715
  14. ZOFRAN [Concomitant]
     Active Substance: ONDANSETRON HYDROCHLORIDE
     Indication: PROPHYLAXIS
     Dosage: UNK
     Route: 065
     Dates: start: 20190614, end: 20190704
  15. CALCIUM FOLINATE [Suspect]
     Active Substance: LEUCOVORIN CALCIUM
     Indication: PANCREATIC CARCINOMA METASTATIC
     Dosage: 832.8 MG, QCY
     Route: 042
     Dates: start: 20190614, end: 20190614
  16. OXALIPLATIN. [Suspect]
     Active Substance: OXALIPLATIN
     Dosage: 80 MG, QCY
     Route: 058
     Dates: start: 20190614, end: 20190614
  17. UNACID PD [Concomitant]
     Active Substance: SULTAMICILLIN TOSYLATE
     Indication: PRODUCT USED FOR UNKNOWN INDICATION
     Dosage: UNK
     Route: 065
  18. FLUOROURACIL. [Suspect]
     Active Substance: FLUOROURACIL
     Dosage: 832.8 MG, QCY
     Route: 040
     Dates: start: 20190614, end: 20190614
  19. PANTOPRAZOL [Concomitant]
     Active Substance: PANTOPRAZOLE SODIUM
     Indication: PROPHYLAXIS
     Dosage: UNK
     Route: 065
     Dates: start: 20180911
  20. FLUOROURACIL. [Suspect]
     Active Substance: FLUOROURACIL
     Dosage: 832.8 MG, QCY
     Route: 040
     Dates: start: 20190616, end: 20190616
  21. FLUOROURACIL. [Suspect]
     Active Substance: FLUOROURACIL
     Dosage: 832.8 MG, CYCLIC
     Route: 040
     Dates: start: 20190706, end: 20190706
  22. FLUOROURACIL. [Suspect]
     Active Substance: FLUOROURACIL
     Dosage: 4996.8 MG CYCLICAL
     Route: 042
     Dates: start: 20190706, end: 20190706
  23. CALCIUM FOLINATE [Suspect]
     Active Substance: LEUCOVORIN CALCIUM
     Dosage: 832.8 MG, QCY
     Route: 042
     Dates: start: 20190704, end: 20190704
  24. OXALIPLATIN. [Suspect]
     Active Substance: OXALIPLATIN
     Dosage: 176.97 MG, CYCLIC
     Route: 042
     Dates: start: 20190704, end: 20190704

REACTIONS (3)
  - Fatigue [Recovering/Resolving]
  - General physical health deterioration [Recovering/Resolving]
  - Infection [Not Recovered/Not Resolved]

NARRATIVE: CASE EVENT DATE: 20190620
